FAERS Safety Report 4312492-7 (Version None)
Quarter: 2004Q1

REPORT INFORMATION
  Report Type: 
  Country: None (occurrence: None)
  Receive Date: 20040302
  Receipt Date: 20031101
  Transmission Date: 20041129
  Serious: No
  Sender: FDA-Public Use
  Company Number: 701016

PATIENT
  Sex: Female

DRUGS (2)
  1. AMEVIVE [Suspect]
     Indication: PSORIASIS
     Dosage: 15 MG QW IM
     Dates: start: 20030601
  2. CYCLOSPORINE [Concomitant]

REACTIONS (4)
  - BLOOD CREATINE PHOSPHOKINASE INCREASED [None]
  - CHROMATURIA [None]
  - FEELING ABNORMAL [None]
  - MYALGIA [None]
